FAERS Safety Report 4783033-5 (Version None)
Quarter: 2005Q3

REPORT INFORMATION
  Report Type: 
  Country: None (occurrence: None)
  Receive Date: 20050927
  Receipt Date: 20050914
  Transmission Date: 20060218
  Serious: Yes (Other)
  Sender: FDA-Public Use
  Company Number: 2005127263

PATIENT
  Age: 14 Year
  Sex: Male
  Weight: 78.9259 kg

DRUGS (2)
  1. BENADRYL [Suspect]
     Indication: URTICARIA
     Dosage: ONE KAPSEAL ONE TIME, ORAL
     Route: 048
     Dates: start: 20050909, end: 20050909
  2. BENADRYL [Suspect]
     Indication: URTICARIA
     Dosage: UNSPECIFIED AMOUNT, TOPICAL
     Route: 061
     Dates: start: 20050909

REACTIONS (3)
  - BLOOD GLUCOSE INCREASED [None]
  - BLOOD PRESSURE DECREASED [None]
  - CONVULSION [None]
